FAERS Safety Report 16275874 (Version 9)
Quarter: 2019Q3

REPORT INFORMATION
  Report Type: Spontaneous
  Country: US (occurrence: US)
  Receive Date: 20190506
  Receipt Date: 20190709
  Transmission Date: 20191004
  Serious: Yes (Hospitalization)
  Sender: FDA-Public Use
  Company Number: US-SA-2019SA116168

PATIENT
  Age: 64 Year
  Sex: Female

DRUGS (1)
  1. CABLIVI [Suspect]
     Active Substance: CAPLACIZUMAB-YHDP
     Indication: THROMBOTIC MICROANGIOPATHY
     Dosage: 11 MG, QD
     Route: 058
     Dates: start: 20190416

REACTIONS (7)
  - Blood test abnormal [Not Recovered/Not Resolved]
  - Product administered at inappropriate site [Unknown]
  - Anaemia [Unknown]
  - Asthenia [Unknown]
  - Injection site erythema [Unknown]
  - Platelet count increased [Unknown]
  - Platelet count abnormal [Unknown]

NARRATIVE: CASE EVENT DATE: 20190509
